FAERS Safety Report 11767699 (Version 1)
Quarter: 2015Q4

REPORT INFORMATION
  Report Type: Spontaneous
  Country: US (occurrence: None)
  Receive Date: 20151120
  Receipt Date: 20151120
  Transmission Date: 20160304
  Serious: Yes (Hospitalization)
  Sender: FDA-Public Use
  Company Number: None

PATIENT
  Age: 68 Year
  Sex: Male

DRUGS (2)
  1. PALIPERIDONE [Suspect]
     Active Substance: PALIPERIDONE
     Indication: BIPOLAR DISORDER
     Dosage: SQ
     Route: 058
     Dates: start: 20150930, end: 20151007
  2. PALIPERIDONE [Suspect]
     Active Substance: PALIPERIDONE
     Indication: MANIA
     Dosage: SQ
     Route: 058
     Dates: start: 20150930, end: 20151007

REACTIONS (2)
  - Dysphagia [None]
  - Parkinsonism [None]

NARRATIVE: CASE EVENT DATE: 20151022
